FAERS Safety Report 14124477 (Version 3)
Quarter: 2017Q4

REPORT INFORMATION
  Report Type: Spontaneous
  Country: US (occurrence: US)
  Receive Date: 20171025
  Receipt Date: 20171208
  Transmission Date: 20180321
  Serious: No
  Sender: FDA-Public Use
  Company Number: US-PFIZER INC-2017459192

PATIENT
  Age: 65 Year
  Sex: Female
  Weight: 68 kg

DRUGS (7)
  1. IBRANCE [Suspect]
     Active Substance: PALBOCICLIB
     Indication: BREAST CANCER METASTATIC
     Dosage: 125 MG, CYCLIC (THREE WEEKS ON AND ONE WEEK OFF)
  2. AMLODIPINE [Concomitant]
     Active Substance: AMLODIPINE BESYLATE
     Indication: HYPERTENSION
     Dosage: 5 MG, 1X/DAY
  3. CITALOPRAM [Concomitant]
     Active Substance: CITALOPRAM HYDROBROMIDE
     Indication: DEPRESSION
     Dosage: 40 MG, DAILY (40 MG, 1 PILL DAILY)
  4. ASPIRIN. [Concomitant]
     Active Substance: ASPIRIN
     Dosage: 81 MG, DAILY
  5. HYDROCODONE [Concomitant]
     Active Substance: HYDROCODONE
     Indication: PHLEBITIS
     Dosage: UNK
     Dates: end: 20171013
  6. MIRTAZAPINE. [Concomitant]
     Active Substance: MIRTAZAPINE
     Indication: APPETITE DISORDER
     Dosage: 15 MG, DAILY (15 MG, ONE TABLET AT NIGHT)
  7. FUROSEMIDE. [Concomitant]
     Active Substance: FUROSEMIDE
     Indication: SWELLING
     Dosage: 20 MG, UNK

REACTIONS (5)
  - Neoplasm progression [Unknown]
  - Stomatitis [Unknown]
  - Constipation [Unknown]
  - Confusional state [Unknown]
  - Rash [Unknown]
